FAERS Safety Report 19975299 (Version 2)
Quarter: 2021Q4

REPORT INFORMATION
  Report Type: Report from Study
  Country: JP (occurrence: JP)
  Receive Date: 20211020
  Receipt Date: 20211109
  Transmission Date: 20220303
  Serious: Yes (Death, Hospitalization)
  Sender: FDA-Public Use
  Company Number: JP-CELLTRION INC.-2021JP014258

PATIENT

DRUGS (20)
  1. INVESTIGATIONAL BIOSIMILARS [Suspect]
     Active Substance: INVESTIGATIONAL BIOSIMILARS
     Indication: HER2 positive gastric cancer
     Dosage: 410 MG, QD
     Route: 041
     Dates: start: 20200325, end: 20200325
  2. INVESTIGATIONAL BIOSIMILARS [Suspect]
     Active Substance: INVESTIGATIONAL BIOSIMILARS
     Dosage: 300 MG, QD
     Route: 041
     Dates: start: 20200417, end: 20200417
  3. INVESTIGATIONAL BIOSIMILARS [Suspect]
     Active Substance: INVESTIGATIONAL BIOSIMILARS
     Dosage: 300 MG, QD
     Route: 041
     Dates: start: 20200507, end: 20200507
  4. INVESTIGATIONAL BIOSIMILARS [Suspect]
     Active Substance: INVESTIGATIONAL BIOSIMILARS
     Dosage: 300 MG, QD
     Route: 041
     Dates: start: 20200529, end: 20200529
  5. OXALIPLATIN [Suspect]
     Active Substance: OXALIPLATIN
     Indication: HER2 positive gastric cancer
     Dosage: 130 MG, QD
     Route: 041
     Dates: start: 20200325, end: 20200325
  6. OXALIPLATIN [Suspect]
     Active Substance: OXALIPLATIN
     Dosage: 130 MG, QD
     Route: 041
     Dates: start: 20200417, end: 20200417
  7. OXALIPLATIN [Suspect]
     Active Substance: OXALIPLATIN
     Dosage: 130 MG, QD
     Route: 041
     Dates: start: 20200507, end: 20200507
  8. OXALIPLATIN [Suspect]
     Active Substance: OXALIPLATIN
     Dosage: 130 MG, QD
     Route: 041
     Dates: start: 20200529, end: 20200529
  9. CAPECITABINE [Suspect]
     Active Substance: CAPECITABINE
     Indication: HER2 positive gastric cancer
     Dosage: 2400 MG, QD
     Route: 048
     Dates: start: 20200325, end: 20200407
  10. CAPECITABINE [Suspect]
     Active Substance: CAPECITABINE
     Dosage: 2400 MG, QD
     Route: 048
     Dates: start: 20200417, end: 20200430
  11. CAPECITABINE [Suspect]
     Active Substance: CAPECITABINE
     Dosage: 2400 MG, QD
     Route: 048
     Dates: start: 20200507, end: 20200521
  12. CAPECITABINE [Suspect]
     Active Substance: CAPECITABINE
     Dosage: 2400 MG, QD
     Route: 048
     Dates: start: 20200529, end: 20200611
  13. ENALAPRIL [Concomitant]
     Active Substance: ENALAPRIL
     Indication: Hypertension
     Dosage: UNK
  14. AMLODIPINE [Concomitant]
     Active Substance: AMLODIPINE BESYLATE
     Indication: Hypertension
     Dosage: UNK
  15. ADALAT [Concomitant]
     Active Substance: NIFEDIPINE
     Indication: Hypertension
     Dosage: UNK
  16. ONGLYZA [Concomitant]
     Active Substance: SAXAGLIPTIN HYDROCHLORIDE
     Indication: Diabetes mellitus
     Dosage: UNK
  17. BASEN [Concomitant]
     Indication: Diabetes mellitus
     Dosage: UNK
  18. NEXIUM [Concomitant]
     Active Substance: ESOMEPRAZOLE MAGNESIUM
     Indication: Gastric ulcer
     Dosage: UNK
  19. MIYA-BM [Concomitant]
     Active Substance: CLOSTRIDIUM BUTYRICUM SPORES STRAIN M-55
     Indication: Gastric ulcer
     Dosage: UNK
  20. SENNOSIDES [Concomitant]
     Active Substance: SENNOSIDES
     Indication: Constipation
     Dosage: UNK

REACTIONS (4)
  - HER2 positive gastric cancer [Fatal]
  - Febrile neutropenia [Unknown]
  - Neutrophil count decreased [Recovered/Resolved]
  - Overdose [Unknown]

NARRATIVE: CASE EVENT DATE: 20200710
